FAERS Safety Report 20380623 (Version 1)
Quarter: 2022Q1

REPORT INFORMATION
  Report Type: Spontaneous
  Country: US (occurrence: US)
  Receive Date: 20220127
  Receipt Date: 20220127
  Transmission Date: 20220423
  Serious: No
  Sender: FDA-Public Use
  Company Number: US-SA-SAC20220122000282

PATIENT
  Age: 63 Year
  Sex: Male

DRUGS (3)
  1. AUBAGIO [Suspect]
     Active Substance: TERIFLUNOMIDE
     Indication: Multiple sclerosis
     Dosage: 14 MG,QD
     Route: 048
     Dates: start: 20200526
  2. MEDROL [Concomitant]
     Active Substance: METHYLPREDNISOLONE
     Indication: Gait disturbance
  3. MEDROL [Concomitant]
     Active Substance: METHYLPREDNISOLONE
     Indication: Arthropathy

REACTIONS (3)
  - Gait disturbance [Unknown]
  - Arthropathy [Unknown]
  - Hypokinesia [Unknown]

NARRATIVE: CASE EVENT DATE: 20220112
